FAERS Safety Report 16672792 (Version 1)
Quarter: 2019Q3

REPORT INFORMATION
  Report Type: Spontaneous
  Country: US (occurrence: US)
  Receive Date: 20190805
  Receipt Date: 20190805
  Transmission Date: 20191004
  Serious: Yes (Other)
  Sender: FDA-Public Use
  Company Number: None

PATIENT
  Age: 5 Year
  Sex: Female
  Weight: 22.5 kg

DRUGS (1)
  1. TAMIFLU [Suspect]
     Active Substance: OSELTAMIVIR PHOSPHATE
     Indication: INFLUENZA
     Route: 048
     Dates: start: 20190203, end: 20190206

REACTIONS (8)
  - Dysphonia [None]
  - Inappropriate affect [None]
  - Fear [None]
  - Panic reaction [None]
  - Social avoidant behaviour [None]
  - Sexually inappropriate behaviour [None]
  - Eye movement disorder [None]
  - Hallucination [None]

NARRATIVE: CASE EVENT DATE: 20190203
